FAERS Safety Report 5302137-1 (Version None)
Quarter: 2007Q2

REPORT INFORMATION
  Report Type: 
  Country: None (occurrence: None)
  Receive Date: 20070412
  Receipt Date: 20070405
  Transmission Date: 20071010
  Serious: Yes (Hospitalization)
  Sender: FDA-Public Use
  Company Number: 028-C5013-07040347

PATIENT
  Age: 66 Year
  Sex: Female
  Weight: 62 kg

DRUGS (2)
  1. CC-5013 (LENALIDOMIDE) (CAPSULES) [Suspect]
     Indication: MULTIPLE MYELOMA
     Dosage: 10 MG, DAYS 1-21, 28 DAY CYCLE, ORAL
     Route: 048
     Dates: start: 20060309
  2. CEFTRIAZONE [Concomitant]

REACTIONS (2)
  - CHOLANGITIS [None]
  - THROMBOCYTOPENIA [None]
